FAERS Safety Report 11454313 (Version 1)
Quarter: 2015Q3

REPORT INFORMATION
  Report Type: Spontaneous
  Country: US (occurrence: US)
  Receive Date: 20150831
  Receipt Date: 20150831
  Transmission Date: 20151125
  Serious: No
  Sender: FDA-Public Use
  Company Number: US-ELI_LILLY_AND_COMPANY-US201003003219

PATIENT
  Age: 74 Year
  Sex: Female

DRUGS (28)
  1. CYMBALTA [Suspect]
     Active Substance: DULOXETINE HYDROCHLORIDE
     Dosage: 60 MG, DAILY (1/D)
     Route: 048
     Dates: start: 2010
  2. RAMIPRIL. [Concomitant]
     Active Substance: RAMIPRIL
  3. FISH OIL [Concomitant]
     Active Substance: FISH OIL
  4. CYMBALTA [Suspect]
     Active Substance: DULOXETINE HYDROCHLORIDE
     Indication: DEPRESSION
     Dosage: 60 MG, DAILY (1/D)
     Route: 048
  5. ANTIINFLAMMATORY/ANTIRHEUMATIC PRODUCTS [Concomitant]
     Active Substance: UNSPECIFIED INGREDIENT
  6. TOPROL XL [Concomitant]
     Active Substance: METOPROLOL SUCCINATE
  7. WARFARIN [Concomitant]
     Active Substance: WARFARIN
  8. MAXZIDE [Concomitant]
     Active Substance: HYDROCHLOROTHIAZIDE\TRIAMTERENE
  9. DARVOCET [Concomitant]
     Active Substance: ACETAMINOPHEN\PROPOXYPHENE HYDROCHLORIDE
  10. ACIDOPHILUS [Concomitant]
     Active Substance: LACTOBACILLUS ACIDOPHILUS
  11. VITAMIN C [Concomitant]
     Active Substance: ASCORBIC ACID
  12. CLONAZEPAM. [Concomitant]
     Active Substance: CLONAZEPAM
  13. AMLODIPINE [Concomitant]
     Active Substance: AMLODIPINE BESYLATE
  14. GLUCOSAMINE/CHONDROITIN            /01625901/ [Concomitant]
  15. FIBERCON [Concomitant]
     Active Substance: CALCIUM POLYCARBOPHIL
  16. CHROMIUM PICOLINATE [Concomitant]
     Active Substance: CHROMIUM PICOLINATE
  17. COQ10 [Concomitant]
     Active Substance: UBIDECARENONE
  18. CYMBALTA [Suspect]
     Active Substance: DULOXETINE HYDROCHLORIDE
     Dosage: 60 MG, DAILY (1/D)
     Route: 048
  19. CENTRUM /00554501/ [Concomitant]
     Active Substance: VITAMINS
  20. AMBIEN [Concomitant]
     Active Substance: ZOLPIDEM TARTRATE
  21. CYMBALTA [Suspect]
     Active Substance: DULOXETINE HYDROCHLORIDE
     Dosage: 90 MG, DAILY (1/D)
     Route: 048
  22. ESTRADIOL. [Concomitant]
     Active Substance: ESTRADIOL
  23. DIGOXIN. [Concomitant]
     Active Substance: DIGOXIN
  24. PRILOSEC [Concomitant]
     Active Substance: OMEPRAZOLE MAGNESIUM
  25. XANAX [Concomitant]
     Active Substance: ALPRAZOLAM
  26. CITRICAL /00108001/ [Concomitant]
  27. VITAMIN E [Concomitant]
     Active Substance: .ALPHA.-TOCOPHEROL
  28. NIACIN. [Concomitant]
     Active Substance: NIACIN

REACTIONS (9)
  - Palpitations [Recovered/Resolved]
  - Joint injury [Unknown]
  - Depression [Not Recovered/Not Resolved]
  - Paraesthesia [Recovering/Resolving]
  - Fatigue [Unknown]
  - Drug effect incomplete [Not Recovered/Not Resolved]
  - Feeling abnormal [Unknown]
  - Anxiety [Not Recovered/Not Resolved]
  - Hot flush [Recovered/Resolved]

NARRATIVE: CASE EVENT DATE: 2010
